FAERS Safety Report 23796789 (Version 1)
Quarter: 2024Q2

REPORT INFORMATION
  Report Type: Spontaneous
  Country: US (occurrence: US)
  Receive Date: 20240430
  Receipt Date: 20240430
  Transmission Date: 20240716
  Serious: Yes (Other)
  Sender: FDA-Public Use
  Company Number: US-PADAGIS-2024PAD00716

PATIENT

DRUGS (1)
  1. TESTOSTERONE CYPIONATE [Suspect]
     Active Substance: TESTOSTERONE CYPIONATE
     Indication: Transgender hormonal therapy
     Dosage: 100 MG, WEEKLY
     Route: 030

REACTIONS (4)
  - Intracranial pressure increased [None]
  - Weight increased [None]
  - Product use in unapproved indication [Unknown]
  - Product use issue [Unknown]
